FAERS Safety Report 6735445-8 (Version None)
Quarter: 2010Q2

REPORT INFORMATION
  Report Type: 
  Country: None (occurrence: None)
  Receive Date: 20100521
  Receipt Date: 20100514
  Transmission Date: 20101027
  Serious: Yes (Other)
  Sender: FDA-Public Use
  Company Number: PHHY2010US27638

PATIENT
  Sex: Female
  Weight: 92.971 kg

DRUGS (4)
  1. DIOVAN [Suspect]
     Indication: BLOOD PRESSURE INCREASED
     Dosage: ONCE DAILY (160 MG), UNK
     Route: 048
     Dates: start: 20100420, end: 20100427
  2. DOXYCYCLINE [Concomitant]
     Indication: ARTHROPOD BITE
     Dosage: 100 MG, BID
     Route: 048
     Dates: start: 20100420, end: 20100430
  3. POTASSIUM CHLORIDE [Concomitant]
     Indication: FLUID RETENTION
     Dosage: ONE DAILY
     Route: 048
  4. FUROSEMIDE [Concomitant]
     Indication: FLUID RETENTION
     Dosage: ONCE DAILY (20 MG)
     Route: 048

REACTIONS (3)
  - CHEST PAIN [None]
  - HYPERHIDROSIS [None]
  - MYOCARDIAL INFARCTION [None]
